FAERS Safety Report 23197810 (Version 1)
Quarter: 2023Q4

REPORT INFORMATION
  Report Type: Spontaneous
  Country: US (occurrence: None)
  Receive Date: 20231116
  Receipt Date: 20231116
  Transmission Date: 20240110
  Serious: Yes (Hospitalization)
  Sender: FDA-Public Use
  Company Number: None

PATIENT
  Age: 62 Year
  Sex: Male

DRUGS (1)
  1. CAPECITABINE [Suspect]
     Active Substance: CAPECITABINE
     Indication: Bile duct cancer
     Dosage: 1500 MG TWICE DAILY 14ON/7OFF ORAL?
     Route: 048
     Dates: start: 202308

REACTIONS (2)
  - Biliary obstruction [None]
  - Jaundice [None]

NARRATIVE: CASE EVENT DATE: 20231113
